FAERS Safety Report 9894713 (Version 1)
Quarter: 2014Q1

REPORT INFORMATION
  Report Type: Spontaneous
  Country: FR (occurrence: FR)
  Receive Date: 20140213
  Receipt Date: 20140213
  Transmission Date: 20141002
  Serious: Yes (Hospitalization, Other)
  Sender: FDA-Public Use
  Company Number: FR-PFIZER INC-2014038269

PATIENT
  Sex: Female

DRUGS (2)
  1. EFFEXOR [Suspect]
     Dosage: 150 MG, DAILY
  2. LEXOMIL ROCHE [Suspect]
     Dosage: QUARTER OF A TABLET, DAILY

REACTIONS (3)
  - Overdose [Unknown]
  - Renal pain [Unknown]
  - Complication of delivery [Unknown]
